FAERS Safety Report 8248554-1 (Version None)
Quarter: 2012Q1

REPORT INFORMATION
  Report Type: 
  Country: None (occurrence: None)
  Receive Date: 20120330
  Receipt Date: 20120323
  Transmission Date: 20120608
  Serious: Yes (Other)
  Sender: FDA-Public Use
  Company Number: CN-ASTRAZENECA-2012SE18786

PATIENT
  Age: 85 Year
  Sex: Female

DRUGS (2)
  1. NEXIUM [Suspect]
     Route: 048
  2. NEXIUM [Suspect]
     Route: 042

REACTIONS (2)
  - BLOOD ALBUMIN DECREASED [None]
  - WHITE BLOOD CELL COUNT DECREASED [None]
